FAERS Safety Report 5301417-3 (Version None)
Quarter: 2007Q2

REPORT INFORMATION
  Report Type: 
  Country: None (occurrence: None)
  Receive Date: 20070418
  Receipt Date: 20070410
  Transmission Date: 20071010
  Serious: Yes (Hospitalization)
  Sender: FDA-Public Use
  Company Number: JP-PFIZER INC-2007018009

PATIENT
  Age: 34 Year
  Sex: Female

DRUGS (1)
  1. RELPAX [Suspect]
     Indication: MIGRAINE
     Dosage: DAILY DOSE:20MG
     Route: 048
     Dates: start: 20070215, end: 20070217

REACTIONS (1)
  - CEREBELLAR INFARCTION [None]
